FAERS Safety Report 16013596 (Version 1)
Quarter: 2019Q1

REPORT INFORMATION
  Report Type: Spontaneous
  Country: US (occurrence: US)
  Receive Date: 20190227
  Receipt Date: 20190227
  Transmission Date: 20190418
  Serious: No
  Sender: FDA-Public Use
  Company Number: None

PATIENT
  Age: 35 Year
  Sex: Male
  Weight: 87.75 kg

DRUGS (3)
  1. GUAIFENESIN/CODEINE [Suspect]
     Active Substance: CODEINE PHOSPHATE\GUAIFENESIN
     Indication: RESPIRATORY TRACT INFECTION
     Dosage: ?          QUANTITY:5 ML;?
     Route: 048
     Dates: start: 20190225, end: 20190227
  2. AZITROMYCIN [Concomitant]
     Active Substance: AZITHROMYCIN ANHYDROUS
  3. IBUPROFEN. [Concomitant]
     Active Substance: IBUPROFEN

REACTIONS (3)
  - Paradoxical drug reaction [None]
  - Cough [None]
  - Drug ineffective [None]

NARRATIVE: CASE EVENT DATE: 20190225
